FAERS Safety Report 6574233-2 (Version None)
Quarter: 2010Q1

REPORT INFORMATION
  Report Type: 
  Country: None (occurrence: None)
  Receive Date: 20100201
  Receipt Date: 20090421
  Transmission Date: 20100710
  Serious: Yes (Death)
  Sender: FDA-Public Use
  Company Number: 004958

PATIENT
  Age: 54 Year
  Sex: Male

DRUGS (3)
  1. PREDNISOLONE [Suspect]
     Indication: INTERSTITIAL LUNG DISEASE
     Dosage: (1 MG/KG QD)
  2. METHYLPREDNISOLONE [Concomitant]
  3. CYCLOSPORINE [Concomitant]

REACTIONS (1)
  - GASTRIC CANCER [None]
